FAERS Safety Report 25243846 (Version 1)
Quarter: 2025Q2

REPORT INFORMATION
  Report Type: Spontaneous
  Country: US (occurrence: US)
  Receive Date: 20250428
  Receipt Date: 20250428
  Transmission Date: 20250716
  Serious: Yes (Other)
  Sender: COOPERSURGICAL
  Company Number: US-COOPERSURGICAL, INC.-2025CPS003206

PATIENT
  Age: 34 Year
  Sex: Female
  Weight: 97.959 kg

DRUGS (2)
  1. PARAGARD T 380A [Suspect]
     Active Substance: COPPER
     Indication: Contraception
     Route: 015
     Dates: start: 20090610
  2. METFORMIN [Concomitant]
     Active Substance: METFORMIN HYDROCHLORIDE
     Dates: start: 20180101

REACTIONS (10)
  - Reproductive complication associated with device [Not Recovered/Not Resolved]
  - Infertility female [Not Recovered/Not Resolved]
  - Device breakage [Recovered/Resolved]
  - Foreign body in reproductive tract [Recovered/Resolved]
  - Complication of device removal [Recovered/Resolved]
  - Procedural pain [Unknown]
  - Muscle spasms [Unknown]
  - Abnormal uterine bleeding [Recovered/Resolved]
  - Pelvic pain [Recovered/Resolved]
  - Dyspareunia [Recovered/Resolved]

NARRATIVE: CASE EVENT DATE: 20180517
